FAERS Safety Report 8829135 (Version 1)
Quarter: 2012Q4

REPORT INFORMATION
  Report Type: 
  Country: US (occurrence: US)
  Receive Date: 20121008
  Receipt Date: 20121008
  Transmission Date: 20130627
  Serious: Yes (Other)
  Sender: FDA-Public Use
  Company Number: CHPA2012US020610

PATIENT
  Age: 60 Year
  Sex: Female

DRUGS (2)
  1. EXCEDRIN EXTRA STRENGTH [Suspect]
     Indication: FIBROMYALGIA
     Dosage: 2 DF, 2-3 times every day
     Route: 048
     Dates: start: 1992
  2. EXCEDRIN EXTRA STRENGTH [Suspect]
     Dosage: UNK, PRN
     Route: 048
     Dates: start: 1972, end: 1992

REACTIONS (6)
  - Brain injury [Not Recovered/Not Resolved]
  - Fibromyalgia [Not Recovered/Not Resolved]
  - Diabetes mellitus [Not Recovered/Not Resolved]
  - Road traffic accident [Recovered/Resolved]
  - Headache [Not Recovered/Not Resolved]
  - Incorrect drug administration duration [Unknown]
